FAERS Safety Report 20055586 (Version 2)
Quarter: 2021Q4

REPORT INFORMATION
  Report Type: Spontaneous
  Country: HU (occurrence: HU)
  Receive Date: 20211110
  Receipt Date: 20211116
  Transmission Date: 20220303
  Serious: Yes (Other)
  Sender: FDA-Public Use
  Company Number: HU-BoehringerIngelheim-2021-BI-137452

PATIENT
  Sex: Female
  Weight: 80 kg

DRUGS (4)
  1. SYNJARDY [Suspect]
     Active Substance: EMPAGLIFLOZIN\METFORMIN HYDROCHLORIDE
     Indication: Diabetes mellitus
     Dosage: 5/1000, ONE TABLET TWICE DAILY
     Dates: start: 20151201, end: 201804
  2. SYNJARDY [Suspect]
     Active Substance: EMPAGLIFLOZIN\METFORMIN HYDROCHLORIDE
     Dosage: REDUCED DOSE (FURTHER NOT SPECIFIED)
     Dates: start: 201804, end: 20200204
  3. LEVOTHYROXINE SODIUM [Concomitant]
     Active Substance: LEVOTHYROXINE SODIUM
     Indication: Product used for unknown indication
  4. MAGNE B6 [Concomitant]
     Active Substance: MAGNESIUM\PYRIDOXINE
     Indication: Product used for unknown indication
     Dosage: ONE DOSAGE FORM TWICE DAILY

REACTIONS (1)
  - Polycythaemia [Recovered/Resolved]
